FAERS Safety Report 26067087 (Version 1)
Quarter: 2025Q4

REPORT INFORMATION
  Report Type: Spontaneous
  Country: CA (occurrence: None)
  Receive Date: 20251119
  Receipt Date: 20251119
  Transmission Date: 20260118
  Serious: Yes (Life-Threatening)
  Sender: ORGANON
  Company Number: CA-ORGANON-O2511CAN001462

PATIENT
  Age: 28 Year
  Sex: Female
  Weight: 85 kg

DRUGS (1)
  1. NEXPLANON [Suspect]
     Active Substance: ETONOGESTREL
     Indication: Contraception
     Dosage: 1 IMPLANT, EVERY 5 YEARS

REACTIONS (12)
  - Abdominal distension [Unknown]
  - Affect lability [Unknown]
  - Alopecia [Unknown]
  - Brain fog [Unknown]
  - Depression [Unknown]
  - Fatigue [Unknown]
  - Gastrointestinal disorder [Unknown]
  - Mood altered [Unknown]
  - Negative thoughts [Unknown]
  - Vaginal haemorrhage [Unknown]
  - Weight increased [Unknown]
  - Product prescribing issue [Unknown]
